FAERS Safety Report 8615745-7 (Version None)
Quarter: 2012Q3

REPORT INFORMATION
  Report Type: 
  Country: None (occurrence: None)
  Receive Date: 20120823
  Receipt Date: 20120815
  Transmission Date: 20120928
  Serious: Yes (Hospitalization)
  Sender: FDA-Public Use
  Company Number: DE-BAXTER-2012BAX014616

PATIENT
  Age: 83 Year
  Sex: Female

DRUGS (4)
  1. ASPIRIN [Concomitant]
     Route: 048
  2. ACTRAPID [Concomitant]
     Indication: DIABETES MELLITUS
     Dosage: 2 X 2 IE
     Route: 058
  3. DIPYRONE TAB [Concomitant]
     Indication: ANALGESIC THERAPY
     Route: 048
  4. CIPROFLOXACIN [Suspect]
     Indication: HAEMATOMA INFECTION
     Route: 042

REACTIONS (1)
  - PEMPHIGUS [None]
